FAERS Safety Report 7389413-6 (Version None)
Quarter: 2011Q2

REPORT INFORMATION
  Report Type: 
  Country: None (occurrence: None)
  Receive Date: 20110401
  Receipt Date: 20110329
  Transmission Date: 20111010
  Serious: Yes (Death)
  Sender: FDA-Public Use
  Company Number: PHHY2011GB25499

PATIENT
  Age: 86 Year
  Sex: Female

DRUGS (2)
  1. AMPICILLIN SODIUM/SULBACTAM SODIUM [Suspect]
     Indication: CHRONIC OBSTRUCTIVE PULMONARY DISEASE
     Dosage: UNK
     Route: 048
     Dates: start: 20100615, end: 20100622
  2. AMPICILLIN SODIUM/SULBACTAM SODIUM [Suspect]
     Indication: LOWER RESPIRATORY TRACT INFECTION
     Dosage: UNK
     Route: 048
     Dates: start: 20100602, end: 20100609

REACTIONS (5)
  - SUBDURAL HAEMORRHAGE [None]
  - PNEUMONIA [None]
  - SEPSIS [None]
  - HEPATIC FAILURE [None]
  - CHOLESTASIS [None]
